FAERS Safety Report 21679576 (Version 8)
Quarter: 2025Q3

REPORT INFORMATION
  Report Type: Report from Study
  Country: JP (occurrence: JP)
  Receive Date: 20221205
  Receipt Date: 20250916
  Transmission Date: 20251020
  Serious: Yes (Hospitalization)
  Sender: TAKEDA
  Company Number: JP-TAKEDA-2022TJP078186

PATIENT
  Age: 57 Year
  Sex: Female
  Weight: 40.9 kg

DRUGS (18)
  1. TEDUGLUTIDE [Suspect]
     Active Substance: TEDUGLUTIDE
     Indication: Short-bowel syndrome
     Dates: start: 20220614, end: 20221107
  2. TEDUGLUTIDE [Suspect]
     Active Substance: TEDUGLUTIDE
     Dates: start: 20221117, end: 20221205
  3. TEDUGLUTIDE [Suspect]
     Active Substance: TEDUGLUTIDE
  4. TEDUGLUTIDE [Suspect]
     Active Substance: TEDUGLUTIDE
  5. VONOPRAZAN FUMARATE [Concomitant]
     Active Substance: VONOPRAZAN FUMARATE
  6. PAPAVER SOMNIFERUM LATEX [Concomitant]
     Indication: Short-bowel syndrome
  7. LOPERAMIDE HYDROCHLORIDE [Concomitant]
     Active Substance: LOPERAMIDE HYDROCHLORIDE
     Indication: Short-bowel syndrome
  8. ALUMINUM SILICATE [Concomitant]
     Active Substance: ALUMINUM SILICATE
     Indication: Short-bowel syndrome
  9. ALESION [Concomitant]
     Active Substance: EPINASTINE HYDROCHLORIDE
  10. FLUNITRAZEPAM [Concomitant]
     Active Substance: FLUNITRAZEPAM
  11. BIO-THREE [Concomitant]
     Active Substance: HERBALS
     Indication: Short-bowel syndrome
  12. BELSOMRA [Concomitant]
     Active Substance: SUVOREXANT
  13. ALBUMIN TANNATE [Concomitant]
     Active Substance: ALBUMIN TANNATE
     Indication: Short-bowel syndrome
  14. DIETARY SUPPLEMENT\PROBIOTICS [Concomitant]
     Active Substance: DIETARY SUPPLEMENT\PROBIOTICS NOS
     Indication: Short-bowel syndrome
  15. DIMETHICONE [Concomitant]
     Active Substance: DIMETHICONE
  16. RIFAXIMIN [Concomitant]
     Active Substance: RIFAXIMIN
  17. MORPHINE HYDROCHLORIDE [Concomitant]
     Active Substance: MORPHINE HYDROCHLORIDE
     Indication: Short-bowel syndrome
  18. PRIMPERAN [Concomitant]
     Active Substance: METOCLOPRAMIDE HYDROCHLORIDE

REACTIONS (1)
  - Diarrhoea [Not Recovered/Not Resolved]

NARRATIVE: CASE EVENT DATE: 20221108
